FAERS Safety Report 5336641-7 (Version None)
Quarter: 2007Q2

REPORT INFORMATION
  Report Type: 
  Country: None (occurrence: None)
  Receive Date: 20070529
  Receipt Date: 20070516
  Transmission Date: 20071010
  Serious: Yes (Hospitalization)
  Sender: FDA-Public Use
  Company Number: US-AVENTIS-200713677US

PATIENT
  Age: 32 Year
  Sex: Female
  Weight: 175 kg

DRUGS (11)
  1. LOVENOX [Suspect]
     Indication: PULMONARY EMBOLISM
     Dates: start: 20070516, end: 20070516
  2. ADVAIR DISKUS 100/50 [Concomitant]
     Dosage: DOSE: UNK
  3. ALBUTEROL [Concomitant]
     Dosage: DOSE: UNK
  4. POTASSIUM ACETATE [Concomitant]
     Dosage: DOSE: UNK
  5. GEODON                             /01487002/ [Concomitant]
     Dosage: DOSE: UNK
  6. LEXAPRO [Concomitant]
     Dosage: DOSE: UNK
  7. MIRENA [Concomitant]
     Dosage: DOSE: UNK
  8. PREVACID [Concomitant]
     Dosage: DOSE: UNK
  9. SENOKOT [Concomitant]
     Dosage: DOSE: UNK
  10. SINGULAIR [Concomitant]
     Dosage: DOSE: UNK
  11. TRAMADOL HCL [Concomitant]
     Dosage: DOSE: UNK

REACTIONS (2)
  - INTENTIONAL OVERDOSE [None]
  - SUICIDE ATTEMPT [None]
